FAERS Safety Report 19176380 (Version 1)
Quarter: 2021Q2

REPORT INFORMATION
  Report Type: Spontaneous
  Country: CA (occurrence: CA)
  Receive Date: 20210423
  Receipt Date: 20210423
  Transmission Date: 20210717
  Serious: Yes (Hospitalization, Other)
  Sender: FDA-Public Use
  Company Number: CA-MYLANLABS-2021M1021938

PATIENT
  Sex: Female
  Weight: 57 kg

DRUGS (5)
  1. MIDAZOLAM. [Suspect]
     Active Substance: MIDAZOLAM
     Indication: COLONOSCOPY
     Dosage: 2 MILLIGRAM
     Route: 065
     Dates: start: 20201116, end: 20201116
  2. PREDNISONE. [Suspect]
     Active Substance: PREDNISONE
     Indication: PRODUCT USED FOR UNKNOWN INDICATION
     Dosage: 50 MILLIGRAM, QD
  3. LEVOTHYROXINE. [Suspect]
     Active Substance: LEVOTHYROXINE
     Indication: PRODUCT USED FOR UNKNOWN INDICATION
     Dosage: UNK
  4. FENTANYL. [Suspect]
     Active Substance: FENTANYL
     Indication: COLONOSCOPY
     Dosage: 50 MILLIGRAM
     Route: 065
     Dates: start: 20201116, end: 20201116
  5. RABEPRAZOLE [Suspect]
     Active Substance: RABEPRAZOLE
     Indication: PRODUCT USED FOR UNKNOWN INDICATION
     Dosage: UNK UNK, BID

REACTIONS (8)
  - Haemorrhage [Unknown]
  - Depression [Recovered/Resolved]
  - Anxiety [Recovered/Resolved]
  - Dehydration [Unknown]
  - Pancreatitis [Not Recovered/Not Resolved]
  - Malaise [Unknown]
  - Anal incontinence [Unknown]
  - Haemoglobin decreased [Unknown]
